FAERS Safety Report 21567646 (Version 2)
Quarter: 2023Q1

REPORT INFORMATION
  Report Type: Spontaneous
  Country: US (occurrence: None)
  Receive Date: 20221108
  Receipt Date: 20230331
  Transmission Date: 20230417
  Serious: Yes (Other)
  Sender: FDA-Public Use
  Company Number: 2022A366349

PATIENT
  Age: 65 Year
  Sex: Female

DRUGS (3)
  1. LYNPARZA [Suspect]
     Active Substance: OLAPARIB
     Route: 048
  2. FASLODEX [Suspect]
     Active Substance: FULVESTRANT
     Route: 030
  3. IBRANCE [Suspect]
     Active Substance: PALBOCICLIB
     Indication: Breast cancer female
     Route: 048

REACTIONS (6)
  - Neoplasm malignant [Unknown]
  - Renal neoplasm [Unknown]
  - Bone cancer [Unknown]
  - Malignant neoplasm progression [Unknown]
  - Vomiting [Unknown]
  - Drug ineffective [Unknown]
